FAERS Safety Report 5709060-9 (Version None)
Quarter: 2008Q2

REPORT INFORMATION
  Report Type: 
  Country: None (occurrence: None)
  Receive Date: 20080418
  Receipt Date: 20080418
  Transmission Date: 20081010
  Serious: Yes (Hospitalization)
  Sender: FDA-Public Use
  Company Number: None

PATIENT
  Age: 29 Year
  Sex: Female
  Weight: 122.4712 kg

DRUGS (1)
  1. HEPARIN SODIUM [Suspect]
     Indication: BLOOD VISCOSITY INCREASED
     Dosage: 0375/ 0.5ML TWICE DAILY;SUBDERMAL
     Route: 059
     Dates: start: 20071020, end: 20080416

REACTIONS (6)
  - ABDOMINAL PAIN UPPER [None]
  - DRUG EXPOSURE DURING PREGNANCY [None]
  - DYSPNOEA [None]
  - GAIT DISTURBANCE [None]
  - INJECTION SITE BRUISING [None]
  - INJECTION SITE ERYTHEMA [None]
